FAERS Safety Report 9667647 (Version 1)
Quarter: 2013Q4

REPORT INFORMATION
  Report Type: Spontaneous
  Country: US (occurrence: US)
  Receive Date: 20131101
  Receipt Date: 20131101
  Transmission Date: 20140711
  Serious: No
  Sender: FDA-Public Use
  Company Number: US-SAVIENT-2012S1000082

PATIENT
  Age: 20 Year
  Sex: Male
  Weight: 43 kg

DRUGS (9)
  1. KRYSTEXXA INJECTION [Suspect]
     Indication: GOUT
     Route: 042
     Dates: start: 20120315, end: 20120315
  2. KRYSTEXXA INJECTION [Suspect]
     Indication: GOUT
     Route: 042
     Dates: start: 20120329, end: 20120329
  3. KRYSTEXXA INJECTION [Suspect]
     Indication: GOUT
     Route: 042
     Dates: start: 20120413, end: 20120413
  4. APAP [Concomitant]
     Indication: PREMEDICATION
     Dates: start: 20120315, end: 20120315
  5. APAP [Concomitant]
     Indication: PREMEDICATION
     Dates: start: 20120329, end: 20120329
  6. APAP [Concomitant]
     Indication: PREMEDICATION
     Dates: start: 20120413, end: 20120413
  7. HYDROCORTISONE [Concomitant]
     Indication: PREMEDICATION
     Dates: start: 20120315, end: 20120315
  8. HYDROCORTISONE [Concomitant]
     Indication: PREMEDICATION
     Dates: start: 20120329, end: 20120329
  9. HYDROCORTISONE [Concomitant]
     Indication: PREMEDICATION
     Dates: start: 20120413, end: 20120413

REACTIONS (1)
  - Therapeutic response decreased [Unknown]
